FAERS Safety Report 25663470 (Version 2)
Quarter: 2025Q3

REPORT INFORMATION
  Report Type: Spontaneous
  Country: EU (occurrence: EU)
  Receive Date: 20250811
  Receipt Date: 20250822
  Transmission Date: 20251021
  Serious: Yes (Death, Other)
  Sender: CELLTRION
  Company Number: EU-AMGEN-POLSP2025104296

PATIENT

DRUGS (3)
  1. BEVACIZUMAB [Suspect]
     Active Substance: BEVACIZUMAB
     Indication: Neuroblastoma
     Route: 065
  2. IRINOTECAN HYDROCHLORIDE [Concomitant]
     Active Substance: IRINOTECAN HYDROCHLORIDE
     Indication: Neuroblastoma
  3. TEMOZOLOMIDE [Concomitant]
     Active Substance: TEMOZOLOMIDE
     Indication: Neuroblastoma

REACTIONS (2)
  - Neuroblastoma [Fatal]
  - Off label use [Unknown]
